FAERS Safety Report 14967037 (Version 1)
Quarter: 2018Q2

REPORT INFORMATION
  Report Type: Spontaneous
  Country: JP (occurrence: JP)
  Receive Date: 20180604
  Receipt Date: 20180604
  Transmission Date: 20180711
  Serious: Yes (Other)
  Sender: FDA-Public Use
  Company Number: JP-CHEPLA-C20170839

PATIENT
  Age: 6 Year
  Sex: Female

DRUGS (3)
  1. ALL-TRANS RETINOIC ACID (ATRA) [Suspect]
     Active Substance: TRETINOIN
     Indication: ACUTE PROMYELOCYTIC LEUKAEMIA
     Route: 065
  2. VORICONAZOLE (VRCZ) [Suspect]
     Active Substance: VORICONAZOLE
     Indication: FUNGAL INFECTION
     Dosage: TREATMENT STARTET ON DAY 22
     Route: 065
  3. MICAFUNGIN [Concomitant]
     Active Substance: MICAFUNGIN
     Indication: ANTIFUNGAL PROPHYLAXIS

REACTIONS (3)
  - Pyrexia [Unknown]
  - Hypercalcaemia [Recovering/Resolving]
  - Labelled drug-drug interaction medication error [Recovering/Resolving]
